FAERS Safety Report 19169147 (Version 1)
Quarter: 2021Q2

REPORT INFORMATION
  Report Type: Spontaneous
  Country: IT (occurrence: IT)
  Receive Date: 20210422
  Receipt Date: 20210422
  Transmission Date: 20210717
  Serious: Yes (Hospitalization)
  Sender: FDA-Public Use
  Company Number: IT-MYLANLABS-2021M1023960

PATIENT
  Age: 45 Year
  Sex: Male

DRUGS (5)
  1. POTASSIUM [Suspect]
     Active Substance: POTASSIUM
     Indication: MINERAL SUPPLEMENTATION
     Dosage: 40 MILLIEQUIVALENT, QD
  2. FLUCYTOSINE. [Suspect]
     Active Substance: FLUCYTOSINE
     Indication: MENINGITIS CRYPTOCOCCAL
     Dosage: 150 MILLIGRAM/KILOGRAM, QD
     Route: 065
  3. AMPHOTERICIN B, LIPOSOME [Suspect]
     Active Substance: AMPHOTERICIN B
     Indication: MENINGITIS CRYPTOCOCCAL
     Dosage: 5 MILLIGRAM/KILOGRAM, QD
     Route: 065
  4. FLUCONAZOLE. [Suspect]
     Active Substance: FLUCONAZOLE
     Indication: MENINGITIS CRYPTOCOCCAL
     Dosage: 800 MILLIGRAM, QD
     Route: 065
  5. POTASSIUM [Suspect]
     Active Substance: POTASSIUM
     Dosage: 20 MILLIEQUIVALENT, QD
     Route: 065

REACTIONS (2)
  - Drug ineffective [Unknown]
  - Anaemia [Not Recovered/Not Resolved]
